FAERS Safety Report 5112655-7 (Version None)
Quarter: 2006Q3

REPORT INFORMATION
  Report Type: 
  Country: None (occurrence: None)
  Receive Date: 20060802
  Receipt Date: 20060515
  Transmission Date: 20061208
  Serious: No
  Sender: FDA-Public Use
  Company Number: 200614352US

PATIENT
  Sex: Male

DRUGS (1)
  1. KETEK [Suspect]
     Indication: LUNG INFECTION
     Dosage: PO
     Route: 048
     Dates: start: 20060101

REACTIONS (4)
  - CHEST PAIN [None]
  - DYSPNOEA [None]
  - PALPITATIONS [None]
  - TACHYCARDIA [None]
